FAERS Safety Report 15919167 (Version 2)
Quarter: 2019Q1

REPORT INFORMATION
  Report Type: Spontaneous
  Country: BE (occurrence: BE)
  Receive Date: 20190205
  Receipt Date: 20190212
  Transmission Date: 20190417
  Serious: Yes (Death)
  Sender: FDA-Public Use
  Company Number: BE-MYLANLABS-2019M1008926

PATIENT
  Age: 86 Year
  Sex: Male

DRUGS (11)
  1. UROKINASE [Suspect]
     Active Substance: UROKINASE
     Indication: MICROEMBOLISM
  2. DAFALGAN [Concomitant]
     Active Substance: ACETAMINOPHEN
     Dosage: 3 GRAM, QD
  3. OMIC [Concomitant]
     Dosage: 0.4 MILLIGRAM, QD
     Dates: start: 20180705
  4. NOVOMIX [Concomitant]
     Active Substance: INSULIN ASPART
     Indication: DIABETES MELLITUS
     Dosage: 4 INTERNATIONAL UNIT, QD
     Dates: start: 20180704
  5. TEMESTA                            /00273201/ [Concomitant]
     Active Substance: LORAZEPAM
     Dosage: 2.5 MILLIGRAM, QD
  6. CLOPIDOGREL [Suspect]
     Active Substance: CLOPIDOGREL BISULFATE
     Indication: STENT PLACEMENT
     Dosage: PLAVIX 300 MG EN DOSE DE CHARGE 2X 150 MG ? 12H ET 18H LE 12/7  + 1X 75 MG ? PARTIR DU 13/7 ? 8H
     Route: 048
     Dates: start: 20180713
  7. CREON [Concomitant]
     Active Substance: PANCRELIPASE AMYLASE\PANCRELIPASE LIPASE\PANCRELIPASE PROTEASE
     Dosage: 150 MILLIGRAM, QD
  8. PANTOMED                           /00178901/ [Concomitant]
     Active Substance: DEXPANTHENOL
     Indication: PROPHYLAXIS
     Dosage: PR?VENTION SAIGNEMENT
     Dates: start: 20180712
  9. NOVALGIN (METAMIZOLE SODIUM) [Concomitant]
     Active Substance: METAMIZOLE SODIUM
     Dosage: 120 GTT DROPS, QD
     Dates: start: 20180705
  10. CLOPIDOGREL [Suspect]
     Active Substance: CLOPIDOGREL BISULFATE
     Dosage: PLAVIX 300 MG EN DOSE DE CHARGE 2X 150 MG ? 12H ET 18H LE 12/7  + 1X 75 MG ? PARTIR DU 13/7 ? 8H
     Route: 048
     Dates: start: 20180712, end: 20180712
  11. UROKINASE [Suspect]
     Active Substance: UROKINASE
     Indication: THROMBOSIS PROPHYLAXIS
     Dosage: 100.000UI 1X
     Route: 042
     Dates: start: 20180712

REACTIONS (3)
  - Malaise [Fatal]
  - Haematoma [Fatal]
  - Blood pressure decreased [Fatal]

NARRATIVE: CASE EVENT DATE: 20180713
